FAERS Safety Report 4828173-7 (Version None)
Quarter: 2005Q4

REPORT INFORMATION
  Report Type: 
  Country: None (occurrence: None)
  Receive Date: 20051115
  Receipt Date: 20051107
  Transmission Date: 20060501
  Serious: Yes (Hospitalization)
  Sender: FDA-Public Use
  Company Number: US-GLAXOSMITHKLINE-A0581192A

PATIENT
  Sex: Female

DRUGS (5)
  1. ADVAIR DISKUS 100/50 [Suspect]
     Indication: DRUG USE FOR UNKNOWN INDICATION
     Route: 055
     Dates: start: 20050701, end: 20050801
  2. FLOVENT [Suspect]
     Indication: DRUG USE FOR UNKNOWN INDICATION
     Route: 055
     Dates: start: 20050401, end: 20051001
  3. ACCOLATE [Concomitant]
  4. TERBUTALINE [Concomitant]
  5. COMBIVENT [Concomitant]

REACTIONS (6)
  - AGITATION [None]
  - CHEST DISCOMFORT [None]
  - DRUG INEFFECTIVE [None]
  - HYPERSENSITIVITY [None]
  - RHINORRHOEA [None]
  - SNEEZING [None]
